FAERS Safety Report 12622902 (Version 1)
Quarter: 2016Q3

REPORT INFORMATION
  Report Type: Spontaneous
  Country: US (occurrence: US)
  Receive Date: 20160804
  Receipt Date: 20160804
  Transmission Date: 20161109
  Serious: Yes (Hospitalization, Other)
  Sender: FDA-Public Use
  Company Number: US-TEVA-680385USA

PATIENT
  Age: 16 Year
  Sex: Female
  Weight: 45.85 kg

DRUGS (37)
  1. METHOTREXATE. [Suspect]
     Active Substance: METHOTREXATE
     Indication: DERMATOMYOSITIS
     Route: 065
     Dates: end: 2016
  2. VENTOLIN [Concomitant]
     Active Substance: ALBUTEROL SULFATE
  3. MOBIC [Concomitant]
     Active Substance: MELOXICAM
  4. GLUCAGON. [Concomitant]
     Active Substance: GLUCAGON
  5. VITAMIN D3 [Concomitant]
     Active Substance: CHOLECALCIFEROL
  6. INSULIN HUMULIN REGULAR [Concomitant]
  7. NIZORAL [Concomitant]
     Active Substance: KETOCONAZOLE
  8. MYALEPT [Suspect]
     Active Substance: METRELEPTIN
     Indication: LIPODYSTROPHY ACQUIRED
     Route: 058
     Dates: start: 20140822
  9. LOFIBRA [Concomitant]
     Active Substance: FENOFIBRATE
  10. MAGNESIUM OXIDE. [Concomitant]
     Active Substance: MAGNESIUM OXIDE
  11. FOLATE [Concomitant]
     Active Substance: FOLATE SODIUM
  12. SILVADENE [Concomitant]
     Active Substance: SILVER SULFADIAZINE
  13. NEURONTIN [Concomitant]
     Active Substance: GABAPENTIN
  14. GLUCOPHAGE [Suspect]
     Active Substance: METFORMIN HYDROCHLORIDE
     Indication: DIABETES MELLITUS
     Dosage: 2000 MILLIGRAM DAILY;
     Route: 048
  15. OMEGA 3 FISH OIL [Concomitant]
     Active Substance: FISH OIL\OMEGA-3 FATTY ACIDS
  16. TYLENOL [Concomitant]
     Active Substance: ACETAMINOPHEN
  17. AMLACTIN [Concomitant]
     Active Substance: AMMONIUM LACTATE
  18. COLACE [Concomitant]
     Active Substance: DOCUSATE SODIUM
  19. ZANTAC [Concomitant]
     Active Substance: RANITIDINE HYDROCHLORIDE
  20. DIPHENHYDRAMINE HCL [Concomitant]
     Active Substance: DIPHENHYDRAMINE HYDROCHLORIDE
  21. LOFIBRA [Concomitant]
     Active Substance: FENOFIBRATE
  22. DULERA [Concomitant]
     Active Substance: FORMOTEROL FUMARATE DIHYDRATE\MOMETASONE FUROATE
  23. FERROUS SULFATE. [Concomitant]
     Active Substance: FERROUS SULFATE
  24. PERIDEX [Concomitant]
     Active Substance: CHLORHEXIDINE GLUCONATE
  25. HYDROCORTISONE. [Concomitant]
     Active Substance: HYDROCORTISONE
  26. NIZORAL [Concomitant]
     Active Substance: KETOCONAZOLE
  27. LISINOPRIL. [Concomitant]
     Active Substance: LISINOPRIL
  28. ZESTRIL [Concomitant]
     Active Substance: LISINOPRIL
  29. TENORMIN [Concomitant]
     Active Substance: ATENOLOL
  30. PRILOSEC [Concomitant]
     Active Substance: OMEPRAZOLE MAGNESIUM
  31. ACTOS [Concomitant]
     Active Substance: PIOGLITAZONE HYDROCHLORIDE
  32. ARISTOCORT [Concomitant]
     Active Substance: TRIAMCINOLONE DIACETATE
  33. PRECOSE [Concomitant]
     Active Substance: ACARBOSE
  34. BACITRACIN ZINC. [Concomitant]
     Active Substance: BACITRACIN ZINC
  35. DIPHENHYDRAMINE HYDROCHLORIDE WITH ZINC ACETATE [Concomitant]
  36. FLONASE [Concomitant]
     Active Substance: FLUTICASONE PROPIONATE
  37. ATENOLOL. [Concomitant]
     Active Substance: ATENOLOL

REACTIONS (9)
  - Blood glucose increased [Recovering/Resolving]
  - Abdominal pain upper [Recovering/Resolving]
  - Withdrawal syndrome [Recovering/Resolving]
  - Tachycardia [Recovering/Resolving]
  - Dyspnoea [Recovering/Resolving]
  - Blood potassium decreased [Recovering/Resolving]
  - Pancreatitis acute [Recovering/Resolving]
  - Lactic acidosis [Recovering/Resolving]
  - Blood phosphorus increased [Recovering/Resolving]

NARRATIVE: CASE EVENT DATE: 20160318
